FAERS Safety Report 10911342 (Version 1)
Quarter: 2015Q1

REPORT INFORMATION
  Report Type: Spontaneous
  Country: GB (occurrence: GB)
  Receive Date: 20150313
  Receipt Date: 20150313
  Transmission Date: 20150721
  Serious: Yes (Other)
  Sender: FDA-Public Use
  Company Number: PHHY2015GB029115

PATIENT
  Age: 45 Month
  Sex: Male

DRUGS (2)
  1. OFLOXACINE [Suspect]
     Active Substance: OFLOXACIN
     Dosage: 300 MG, UNK
     Route: 065
  2. OFLOXACINE [Suspect]
     Active Substance: OFLOXACIN
     Indication: TUBERCULOSIS
     Dosage: 600 MG, UNK
     Route: 065

REACTIONS (3)
  - Accidental overdose [Unknown]
  - Incorrect dose administered [Unknown]
  - Insomnia [Recovered/Resolved]
